FAERS Safety Report 13739077 (Version 2)
Quarter: 2018Q2

REPORT INFORMATION
  Report Type: Report from Study
  Country: US (occurrence: US)
  Receive Date: 20170710
  Receipt Date: 20180627
  Transmission Date: 20180711
  Serious: Yes (Hospitalization, Other)
  Sender: FDA-Public Use
  Company Number: US-SAOL THERAPEUTICS-2017SAO00825

PATIENT
  Age: 55 Year
  Sex: Female
  Weight: 102.49 kg

DRUGS (2)
  1. COMPOUNDED BACLOFEN [Suspect]
     Active Substance: BACLOFEN
     Dosage: 72.5 ?G, \DAY
     Route: 037
     Dates: start: 20140729, end: 20140729
  2. COMPOUNDED BACLOFEN [Suspect]
     Active Substance: BACLOFEN
     Dosage: 70.1 ?G \DAY
     Route: 037
     Dates: start: 20140729

REACTIONS (5)
  - Asthenia [Recovered/Resolved]
  - Somnolence [Recovered/Resolved]
  - Device damage [Recovered/Resolved]
  - Sedation complication [Recovered/Resolved]
  - Implant site extravasation [Recovered/Resolved]

NARRATIVE: CASE EVENT DATE: 20130123
